FAERS Safety Report 7914074-4 (Version None)
Quarter: 2011Q4

REPORT INFORMATION
  Report Type: 
  Country: None (occurrence: None)
  Receive Date: 20111114
  Receipt Date: 20111114
  Transmission Date: 20120403
  Serious: Yes (Hospitalization)
  Sender: FDA-Public Use
  Company Number: None

PATIENT
  Sex: Female
  Weight: 71.5 kg

DRUGS (2)
  1. DOXORUBICIN HCL [Suspect]
     Dosage: 69.4 MG
  2. CISPLATIN [Suspect]
     Dosage: 111 MG

REACTIONS (20)
  - HYPOKALAEMIA [None]
  - BLOOD SODIUM DECREASED [None]
  - NAUSEA [None]
  - ELECTROCARDIOGRAM QT PROLONGED [None]
  - ELECTROLYTE IMBALANCE [None]
  - CLOSTRIDIUM DIFFICILE COLITIS [None]
  - HAEMOGLOBIN DECREASED [None]
  - TORSADE DE POINTES [None]
  - VOMITING [None]
  - PYREXIA [None]
  - PLATELET COUNT DECREASED [None]
  - BLOOD GLUCOSE INCREASED [None]
  - TUMOUR NECROSIS [None]
  - VENTRICULAR FIBRILLATION [None]
  - CARDIO-RESPIRATORY ARREST [None]
  - VENTRICULAR TACHYCARDIA [None]
  - UNRESPONSIVE TO STIMULI [None]
  - HYPOMAGNESAEMIA [None]
  - ABDOMINAL PAIN UPPER [None]
  - BLOOD PHOSPHORUS DECREASED [None]
